FAERS Safety Report 4383524-5 (Version None)
Quarter: 2004Q2

REPORT INFORMATION
  Report Type: 
  Country: None (occurrence: None)
  Receive Date: 20040623
  Receipt Date: 20020715
  Transmission Date: 20050107
  Serious: Yes (Death, Life-Threatening, Hospitalization)
  Sender: FDA-Public Use
  Company Number: US-MERCK-0207USA01402

PATIENT
  Age: 60 Year
  Sex: Female
  Weight: 61 kg

DRUGS (28)
  1. VICODIN [Concomitant]
     Route: 065
     Dates: start: 19990101
  2. PROVENTIL REPETABS AND TABLETS [Concomitant]
     Route: 065
     Dates: start: 19990101
  3. ZITHROMAX [Concomitant]
     Route: 065
     Dates: start: 19990101
  4. BENZONATATE [Concomitant]
     Indication: COUGH
     Route: 065
     Dates: start: 19990101
  5. TUSSI-12 [Concomitant]
     Route: 065
     Dates: start: 19990101
  6. SOMA [Concomitant]
     Route: 065
     Dates: start: 19990101
  7. ZYRTEC [Concomitant]
     Route: 065
     Dates: start: 19990101
  8. CIPRO [Concomitant]
     Indication: INFECTION
     Route: 065
     Dates: start: 19990101
  9. VOLTAREN [Concomitant]
     Route: 065
     Dates: start: 19990101
  10. PREMPRO [Concomitant]
     Indication: HORMONE REPLACEMENT THERAPY
     Route: 065
     Dates: start: 20010608, end: 20010718
  11. TEQUIN [Concomitant]
     Route: 065
     Dates: start: 19990101
  12. HYDROXYZINE HYDROCHLORIDE [Concomitant]
     Route: 065
     Dates: start: 19990101
  13. PREVACID [Concomitant]
     Route: 065
     Dates: start: 19990101
  14. LORABID [Concomitant]
     Indication: INFECTION
     Route: 065
     Dates: start: 19990101
  15. CLARITIN-D [Concomitant]
     Indication: HYPERSENSITIVITY
     Route: 065
     Dates: start: 19990101
  16. LORAZEPAM [Concomitant]
     Route: 065
     Dates: start: 19990101
  17. REMERON [Concomitant]
     Route: 065
     Dates: end: 20010701
  18. PRILOSEC [Concomitant]
     Route: 065
     Dates: start: 19990101
  19. DITROPAN [Concomitant]
     Indication: POLLAKIURIA
     Route: 065
     Dates: start: 19990101
  20. DITROPAN [Concomitant]
     Route: 065
     Dates: start: 19990101
  21. PROMETHAZINE [Concomitant]
     Route: 065
     Dates: start: 19990101
  22. VIOXX [Suspect]
     Indication: ARTHRALGIA
     Route: 048
     Dates: start: 19990607, end: 20000511
  23. VIOXX [Suspect]
     Route: 048
     Dates: start: 19990607, end: 20000511
  24. VIOXX [Suspect]
     Route: 048
     Dates: start: 19990607, end: 20000511
  25. VIOXX [Suspect]
     Indication: BURSITIS
     Route: 048
     Dates: start: 19990607, end: 20000511
  26. VIOXX [Suspect]
     Route: 048
     Dates: start: 19990607, end: 20000511
  27. VIOXX [Suspect]
     Route: 048
     Dates: start: 19990607, end: 20000511
  28. TRIAMCINOLONE [Concomitant]
     Route: 065
     Dates: start: 19990101

REACTIONS (17)
  - ANGINA PECTORIS [None]
  - ARTERIOSCLEROSIS [None]
  - CARDIAC ARREST [None]
  - CORONARY ARTERY ATHEROSCLEROSIS [None]
  - CYSTOCELE [None]
  - HEPATOMEGALY [None]
  - MYOCARDIAL INFARCTION [None]
  - OXYGEN SATURATION DECREASED [None]
  - PLEURAL ADHESION [None]
  - PROCEDURAL COMPLICATION [None]
  - PULMONARY OEDEMA [None]
  - RHONCHI [None]
  - SINUS TACHYCARDIA [None]
  - STRESS INCONTINENCE [None]
  - SUDDEN CARDIAC DEATH [None]
  - VAGINAL PROLAPSE [None]
  - WHEEZING [None]
